FAERS Safety Report 18242338 (Version 4)
Quarter: 2020Q4

REPORT INFORMATION
  Report Type: Report from Study
  Country: JP (occurrence: JP)
  Receive Date: 20200908
  Receipt Date: 20201113
  Transmission Date: 20210113
  Serious: Yes (Other)
  Sender: FDA-Public Use
  Company Number: JP-ASTRAZENECA-2020SF13287

PATIENT
  Age: 77 Year
  Sex: Female

DRUGS (11)
  1. ESOMEPRAZOLE. [Concomitant]
     Active Substance: ESOMEPRAZOLE MAGNESIUM
     Route: 048
  2. BUFFERIN [Concomitant]
     Active Substance: ASPIRIN
     Route: 065
  3. JU-KAMA [Concomitant]
     Active Substance: MAGNESIUM OXIDE
     Route: 065
  4. ISOCORONAL R [Concomitant]
     Active Substance: ISOSORBIDE DINITRATE
     Route: 065
  5. AVAPRO [Concomitant]
     Active Substance: IRBESARTAN
     Route: 065
  6. LYNPARZA [Suspect]
     Active Substance: OLAPARIB
     Indication: OVARIAN CANCER
     Route: 048
     Dates: start: 20180508, end: 20180813
  7. LYNPARZA [Suspect]
     Active Substance: OLAPARIB
     Indication: OVARIAN CANCER
     Route: 048
     Dates: start: 20180925
  8. DILTIAZEM HYDROCHLORIDE. [Concomitant]
     Active Substance: DILTIAZEM HYDROCHLORIDE
     Route: 065
  9. DOGMATYL [Concomitant]
     Active Substance: SULPIRIDE
     Route: 065
  10. RALOXIFENE HYDROCHLORIDE. [Concomitant]
     Active Substance: RALOXIFENE HYDROCHLORIDE
     Route: 065
  11. NICORANDIL [Concomitant]
     Active Substance: NICORANDIL
     Route: 065

REACTIONS (2)
  - Anaemia [Recovered/Resolved]
  - Malignant neoplasm progression [Unknown]

NARRATIVE: CASE EVENT DATE: 20180717
